FAERS Safety Report 5517796-8 (Version None)
Quarter: 2007Q4

REPORT INFORMATION
  Report Type: 
  Country: None (occurrence: None)
  Receive Date: 20071114
  Receipt Date: 20071105
  Transmission Date: 20080405
  Serious: Yes (Hospitalization, Other)
  Sender: FDA-Public Use
  Company Number: US-GILEAD-2007-0013801

PATIENT
  Sex: Female
  Weight: 62.652 kg

DRUGS (6)
  1. LETAIRIS [Suspect]
     Indication: PULMONARY HYPERTENSION
     Dates: start: 20070810
  2. REVATIO [Concomitant]
     Indication: PULMONARY HYPERTENSION
     Route: 048
  3. LASIX [Concomitant]
     Indication: OEDEMA
     Route: 048
  4. PROCARDIA [Concomitant]
     Indication: SCLERODERMA
     Route: 048
  5. ASPIRIN [Concomitant]
     Route: 048
  6. PROAIR HFA [Concomitant]
     Indication: PULMONARY FIBROSIS

REACTIONS (1)
  - PULMONARY OEDEMA [None]
